FAERS Safety Report 9945170 (Version 1)
Quarter: 2014Q1

REPORT INFORMATION
  Report Type: Spontaneous
  Country: US (occurrence: US)
  Receive Date: 20140303
  Receipt Date: 20140303
  Transmission Date: 20141002
  Serious: No
  Sender: FDA-Public Use
  Company Number: US-ABBVIE-13P-163-1049172-00

PATIENT
  Age: 44 Year
  Sex: Male
  Weight: 118.04 kg

DRUGS (9)
  1. HUMIRA [Suspect]
     Indication: PSORIASIS
     Dates: start: 201209
  2. EXFORGE [Concomitant]
     Indication: HYPERTENSION
  3. METOPROLOL [Concomitant]
     Indication: HYPERTENSION
  4. SPIRONOLACTONE [Concomitant]
     Indication: FLUID RETENTION
  5. CLOBETASOL [Concomitant]
     Indication: PSORIASIS
  6. KETOCONAZOLE [Concomitant]
     Indication: PSORIASIS
  7. TRAMADOL [Concomitant]
     Indication: PAIN
  8. ASPIRIN [Concomitant]
     Indication: CORONARY ARTERY DISEASE
  9. VITAMIN D [Concomitant]
     Indication: VITAMIN SUPPLEMENTATION

REACTIONS (4)
  - Incorrect dose administered [Unknown]
  - Injection site haemorrhage [Recovered/Resolved]
  - Injection site pain [Recovered/Resolved]
  - Device malfunction [Not Recovered/Not Resolved]
